FAERS Safety Report 5065278-2 (Version None)
Quarter: 2006Q3

REPORT INFORMATION
  Report Type: 
  Country: None (occurrence: None)
  Receive Date: 20060725
  Receipt Date: 20060712
  Transmission Date: 20061208
  Serious: Yes (Hospitalization, Other)
  Sender: FDA-Public Use
  Company Number: 012379

PATIENT
  Age: 33 Year
  Sex: Female

DRUGS (10)
  1. PRIALT [Suspect]
     Indication: COMPLEX REGIONAL PAIN SYNDROME
     Dosage: 0.05 UG, ONCE/HOUR, INTRATHECAL
     Route: 037
     Dates: start: 20060619
  2. DEMEROL [Suspect]
     Indication: DRUG USE FOR UNKNOWN INDICATION
     Dosage: 50 MG, FOUR/DAY,
  3. FENTANYL [Concomitant]
  4. ACTIQ [Concomitant]
  5. LIBRIUM /00011501/ (CHLORDIAZEPOXIDE) [Concomitant]
  6. ATIVAN [Concomitant]
  7. LEXAPRO [Concomitant]
  8. SOMA [Concomitant]
  9. XANAX [Concomitant]
  10. PHENERGAN /00033001/ (PROMETHAZINE) [Concomitant]

REACTIONS (17)
  - ANAEMIA [None]
  - ANXIETY [None]
  - BLOOD POTASSIUM DECREASED [None]
  - CATHETER SITE RELATED REACTION [None]
  - CONFUSIONAL STATE [None]
  - CONVERSION DISORDER [None]
  - ERYTHEMA [None]
  - GRAND MAL CONVULSION [None]
  - HAEMATOCRIT DECREASED [None]
  - HAEMOGLOBIN DECREASED [None]
  - HEADACHE [None]
  - MEMORY IMPAIRMENT [None]
  - MENTAL STATUS CHANGES [None]
  - NAUSEA [None]
  - RED BLOOD CELL COUNT DECREASED [None]
  - VOMITING [None]
  - WHITE BLOOD CELL COUNT INCREASED [None]
